FAERS Safety Report 6597016-6 (Version None)
Quarter: 2010Q1

REPORT INFORMATION
  Report Type: 
  Country: None (occurrence: None)
  Receive Date: 20100223
  Receipt Date: 20100218
  Transmission Date: 20100710
  Serious: Yes (Hospitalization)
  Sender: FDA-Public Use
  Company Number: A0845218A

PATIENT
  Age: 47 Year
  Sex: Female

DRUGS (6)
  1. LAMICTAL CD [Suspect]
     Dosage: 100MG PER DAY
     Route: 048
     Dates: start: 20091201, end: 20100113
  2. INVEGA [Concomitant]
  3. FISH OILS [Concomitant]
  4. VITAMIN C [Concomitant]
  5. SUPER B COMPLEX [Concomitant]
  6. MSM [Concomitant]

REACTIONS (9)
  - DYSPNOEA [None]
  - FEAR [None]
  - FEELING ABNORMAL [None]
  - HALLUCINATION [None]
  - HEART RATE INCREASED [None]
  - IMMOBILE [None]
  - MUSCLE TWITCHING [None]
  - RASH [None]
  - TREMOR [None]
